FAERS Safety Report 22388938 (Version 1)
Quarter: 2023Q2

REPORT INFORMATION
  Report Type: Spontaneous
  Country: US (occurrence: None)
  Receive Date: 20230530
  Receipt Date: 20230530
  Transmission Date: 20230721
  Serious: Yes (Hospitalization)
  Sender: FDA-Public Use
  Company Number: None

PATIENT
  Age: 78 Year
  Sex: Male

DRUGS (23)
  1. INLYTA [Suspect]
     Active Substance: AXITINIB
     Indication: Renal cancer
     Dosage: FREQUENCY : TWICE A DAY;?
     Route: 048
  2. ALBUTEROL SULFATE HFA [Concomitant]
  3. ASPIRIN [Concomitant]
     Active Substance: ASPIRIN
  4. AUGMENTIN [Concomitant]
     Active Substance: AMOXICILLIN\CLAVULANATE POTASSIUM
  5. ATORVASTATIN [Concomitant]
  6. TEST STRIP [Concomitant]
  7. PENLAC EXTERNAL SOLUTION [Concomitant]
  8. LOTRISONEM [Concomitant]
  9. TRIGLIDE [Concomitant]
  10. NEURONTIN [Concomitant]
     Active Substance: GABAPENTIN
  11. GLIPIZIDE [Concomitant]
  12. VASCEPA [Concomitant]
  13. LEVAQUIN [Concomitant]
     Active Substance: LEVOFLOXACIN
  14. LISINOPRIL [Concomitant]
     Active Substance: LISINOPRIL
  15. METOPROLOL [Concomitant]
     Active Substance: METOPROLOL
  16. PAMELOR [Concomitant]
  17. OMEPRAZOLE [Concomitant]
  18. PREVNAR 13 [Concomitant]
     Active Substance: PNEUMOCOCCAL 13-VALENT CONJUGATE VACCINE
  19. PNEUMOVAX 23 [Concomitant]
  20. PROMETHAZINE [Concomitant]
  21. OZEMPIC [Concomitant]
  22. FLOMAX [Concomitant]
     Active Substance: TAMSULOSIN HYDROCHLORIDE
  23. RESTORIL [Concomitant]
     Active Substance: TEMAZEPAM

REACTIONS (2)
  - Ischaemia [None]
  - Therapy interrupted [None]

NARRATIVE: CASE EVENT DATE: 20230508
